FAERS Safety Report 10337374 (Version 3)
Quarter: 2014Q3

REPORT INFORMATION
  Report Type: Report from Study
  Country: CA (occurrence: CA)
  Receive Date: 20140723
  Receipt Date: 20140815
  Transmission Date: 20150326
  Serious: Yes (Hospitalization)
  Sender: FDA-Public Use
  Company Number: CA-BRISTOL-MYERS SQUIBB COMPANY-19384999

PATIENT
  Age: 48 Year
  Sex: Female
  Weight: 67 kg

DRUGS (11)
  1. PLACEBO [Suspect]
     Active Substance: UNSPECIFIED INGREDIENT
     Indication: MALIGNANT MELANOMA
     Dosage: NVMAB/PLABO:12JUN13-07AUG13:3MG/KG DAY1OF WK 1,3,5?DCBNZ/PLBO:12JUN13-24JUL13:1710MG/DAY,DAY 1+4
     Route: 042
  2. LEVETIRACETAM. [Concomitant]
     Active Substance: LEVETIRACETAM
     Dates: start: 201302
  3. MULTIVITAMIN [Concomitant]
     Active Substance: VITAMINS
     Dates: start: 201206
  4. ADVIL [Concomitant]
     Active Substance: IBUPROFEN
     Dates: start: 20130709
  5. DACARBAZINE. [Suspect]
     Active Substance: DACARBAZINE
     Indication: MALIGNANT MELANOMA
     Dosage: DAY OF WEEK 1 AND 4
     Route: 042
     Dates: start: 20130612, end: 20130724
  6. IPILIMUMAB [Suspect]
     Active Substance: IPILIMUMAB
     Dosage: ONE DOSE; 3 MG/KG, 200 MG INTRAVENOUSLY OVER 90 MINS
     Route: 042
     Dates: start: 20130828, end: 20130828
  7. ZOFRAN [Concomitant]
     Active Substance: ONDANSETRON HYDROCHLORIDE
     Dates: start: 20130612
  8. SYNTHROID [Concomitant]
     Active Substance: LEVOTHYROXINE SODIUM
     Dates: start: 1998
  9. VENLAFAXINE HCL [Concomitant]
     Active Substance: VENLAFAXINE HYDROCHLORIDE
     Dates: start: 201212
  10. VITAMIN D [Concomitant]
     Active Substance: CHOLECALCIFEROL
     Dates: start: 201206
  11. DULCOLAX [Concomitant]
     Active Substance: BISACODYL OR DOCUSATE SODIUM
     Dates: start: 20130615

REACTIONS (1)
  - Mania [Recovered/Resolved]

NARRATIVE: CASE EVENT DATE: 20130829
